FAERS Safety Report 7903213-7 (Version None)
Quarter: 2011Q4

REPORT INFORMATION
  Report Type: 
  Country: None (occurrence: None)
  Receive Date: 20111109
  Receipt Date: 20111031
  Transmission Date: 20120403
  Serious: Yes (Hospitalization, Other)
  Sender: FDA-Public Use
  Company Number: AU-JNJFOC-20061105438

PATIENT
  Sex: Male
  Weight: 69 kg

DRUGS (15)
  1. DARUNAVIR ETHANOLATE [Suspect]
     Indication: HIV INFECTION
     Dosage: TEMPORARY STOP
     Route: 048
     Dates: start: 20051024, end: 20061116
  2. SERETIDE INHALER [Concomitant]
     Indication: ASTHMA
     Route: 055
     Dates: start: 20060601
  3. SPIRIVA [Concomitant]
     Route: 055
     Dates: start: 20060705
  4. TENOFOVIR DISOPROXIL FUMARATE [Concomitant]
     Indication: HIV INFECTION
     Route: 048
     Dates: start: 20061129
  5. RITONAVIR [Suspect]
     Route: 065
     Dates: start: 20061129
  6. VENTOLIN DS [Concomitant]
     Indication: ASTHMA
     Route: 055
     Dates: start: 20060601
  7. LAMIVUDINE (EPIVIR HBV) [Concomitant]
     Route: 048
     Dates: start: 20061026
  8. TENOFOVIR DISOPROXIL FUMARATE [Concomitant]
     Route: 048
     Dates: start: 20030219
  9. COMBIVIR [Concomitant]
     Route: 048
     Dates: start: 20061129
  10. DIFLUCAN [Concomitant]
     Route: 048
     Dates: start: 20060925
  11. LAMIVUDINE (EPIVIR HBV) [Concomitant]
     Route: 048
     Dates: start: 20041027, end: 20051024
  12. RITONAVIR [Suspect]
     Indication: HIV INFECTION
     Route: 065
     Dates: start: 20051024, end: 20061115
  13. DARUNAVIR ETHANOLATE [Suspect]
     Route: 048
     Dates: start: 20061130
  14. SPIRIVA [Concomitant]
     Route: 055
     Dates: start: 20060926
  15. COMBIVIR [Concomitant]
     Indication: HIV INFECTION
     Route: 048
     Dates: start: 20051024, end: 20061025

REACTIONS (2)
  - ASTHMA [None]
  - CUSHING'S SYNDROME [None]
